FAERS Safety Report 8088235-0 (Version None)
Quarter: 2012Q1

REPORT INFORMATION
  Report Type: 
  Country: None (occurrence: None)
  Receive Date: 20120131
  Receipt Date: 20120126
  Transmission Date: 20120608
  Serious: No
  Sender: FDA-Public Use
  Company Number: US-BIOGENIDEC-2012BI003350

PATIENT
  Age: 40 Year
  Sex: Female

DRUGS (2)
  1. TYSABRI [Suspect]
     Indication: MULTIPLE SCLEROSIS
     Route: 042
     Dates: start: 20120117
  2. AVONEX [Concomitant]
     Indication: MULTIPLE SCLEROSIS
     Route: 030

REACTIONS (9)
  - ASTHENIA [None]
  - FATIGUE [None]
  - VOMITING [None]
  - FORMICATION [None]
  - PRURITUS [None]
  - BREAST PAIN [None]
  - NAUSEA [None]
  - HYPOAESTHESIA [None]
  - ABDOMINAL PAIN UPPER [None]
